FAERS Safety Report 10699390 (Version 2)
Quarter: 2015Q1

REPORT INFORMATION
  Report Type: Spontaneous
  Country: IT (occurrence: IT)
  Receive Date: 20150109
  Receipt Date: 20150327
  Transmission Date: 20150721
  Serious: Yes (Hospitalization)
  Sender: FDA-Public Use
  Company Number: IT-ROCHE-1516727

PATIENT
  Age: 38 Year
  Sex: Male

DRUGS (6)
  1. RIVOTRIL [Suspect]
     Active Substance: CLONAZEPAM
     Indication: PSYCHOTIC DISORDER
     Dosage: 2MG TABLETS 20 TABLETS
     Route: 048
     Dates: start: 20141225, end: 20141225
  2. SYCREST [Suspect]
     Active Substance: ASENAPINE MALEATE
     Indication: PSYCHOTIC DISORDER
     Dosage: 10 MG - SUBLINGUAL TABLET 60 TABLETS
     Route: 048
     Dates: start: 20141225, end: 20141225
  3. DEPAKIN [Concomitant]
     Active Substance: VALPROATE SODIUM
     Indication: PSYCHOTIC DISORDER
     Dosage: CHRONO 500 MG SLOW-RELEASE TABLETS 30-TABLETS
     Route: 048
  4. ZYPREXA [Concomitant]
     Active Substance: OLANZAPINE
     Indication: PSYCHOTIC DISORDER
     Dosage: 10 MG POWDER FOR SOLUTION FOR INJECTION
     Route: 030
  5. EN [Suspect]
     Active Substance: DELORAZEPAM
     Indication: PSYCHOTIC DISORDER
     Dosage: 1 MG/ML ORALDROPS, SOLUTION 20 ML BOTTLE
     Route: 048
     Dates: start: 20141225, end: 20141225
  6. SEROQUEL [Concomitant]
     Active Substance: QUETIAPINE FUMARATE
     Indication: PSYCHOTIC DISORDER
     Dosage: 300 MG FILM-COATED TABLETS 60 TABLETS,  500 + 500,
     Route: 048

REACTIONS (3)
  - Bradykinesia [Recovered/Resolved]
  - Bradyphrenia [Recovered/Resolved]
  - Drug abuse [Unknown]

NARRATIVE: CASE EVENT DATE: 20141225
